FAERS Safety Report 8478578-0 (Version None)
Quarter: 2012Q2

REPORT INFORMATION
  Report Type: 
  Country: None (occurrence: None)
  Receive Date: 20120618
  Receipt Date: 20120608
  Transmission Date: 20120825
  Serious: Yes (Other)
  Sender: FDA-Public Use
  Company Number: DSA_57882_2012

PATIENT

DRUGS (6)
  1. DOXORUBICIN HCL [Suspect]
     Indication: OESOPHAGEAL CARCINOMA
     Dosage: (35 MG/M2, EVERY CYCLE)
  2. I.V. SOLUTIONS [Concomitant]
  3. ANTIEMETICS AND ANTINAUSEANTS [Concomitant]
  4. ALL OTHER THERAPEUTIC PRODUCTS [Concomitant]
  5. FLUOROURACIL [Suspect]
     Indication: OESOPHAGEAL CARCINOMA
     Dosage: (700 MG/M2 DAILY INTRAVENOUS (NOT OTHERWISE SPECIFIED)
     Route: 042
  6. CISPLATIN [Suspect]
     Indication: OESOPHAGEAL CARCINOMA
     Dosage: (70 MG/M2, EVERY CYCLE INTRAVENOUS (NOT OTHERWISE SPECIFIED))
     Route: 042

REACTIONS (2)
  - ALANINE AMINOTRANSFERASE INCREASED [None]
  - CONDITION AGGRAVATED [None]
